FAERS Safety Report 5126386-0 (Version None)
Quarter: 2006Q3

REPORT INFORMATION
  Report Type: 
  Country: None (occurrence: None)
  Receive Date: 20060830
  Receipt Date: 20060228
  Transmission Date: 20061208
  Serious: Yes (Life-Threatening, Other)
  Sender: FDA-Public Use
  Company Number: 200610908BWH

PATIENT
  Age: 60 Year
  Sex: Male

DRUGS (2)
  1. TRASYLOL [Suspect]
     Indication: CORONARY ARTERY BYPASS
     Dosage: SEE IMAGE
     Route: 042
     Dates: start: 20050201
  2. TRASYLOL [Suspect]
     Indication: CORONARY ARTERY BYPASS
     Dosage: SEE IMAGE
     Route: 042
     Dates: start: 20050201

REACTIONS (1)
  - PULMONARY EMBOLISM [None]
